FAERS Safety Report 24956520 (Version 2)
Quarter: 2025Q1

REPORT INFORMATION
  Report Type: Spontaneous
  Country: US (occurrence: US)
  Receive Date: 20250211
  Receipt Date: 20250217
  Transmission Date: 20250408
  Serious: No
  Sender: Haleon PLC
  Company Number: US-HALEON-2227392

PATIENT

DRUGS (1)
  1. SENSODYNE CLINICAL WHITE STAIN PROTECTOR [Suspect]
     Active Substance: POTASSIUM NITRATE\SODIUM FLUORIDE
     Indication: Tooth discolouration
     Dates: start: 20241024

REACTIONS (1)
  - Drug ineffective [Unknown]
